FAERS Safety Report 9890816 (Version 1)
Quarter: 2014Q1

REPORT INFORMATION
  Report Type: Spontaneous
  Country: IT (occurrence: IT)
  Receive Date: 20140212
  Receipt Date: 20140212
  Transmission Date: 20141002
  Serious: Yes (Other)
  Sender: FDA-Public Use
  Company Number: IT-TEVA-460483ISR

PATIENT
  Age: 57 Year
  Sex: Female

DRUGS (3)
  1. ANASTRAZOLO TEVA 1 MG [Suspect]
     Indication: BREAST CANCER
     Route: 048
     Dates: start: 20131113, end: 20131213
  2. BISOPROLOLO FUMARATO [Suspect]
     Indication: HYPERTENSION
     Dosage: 10 MILLIGRAM DAILY;
     Route: 048
     Dates: start: 20131113, end: 20131211
  3. TAMOXIFENE CITRATO [Concomitant]
     Indication: BREAST CANCER

REACTIONS (9)
  - Dysphagia [Recovering/Resolving]
  - Laryngeal oedema [Recovering/Resolving]
  - Musculoskeletal pain [Recovering/Resolving]
  - Oropharyngeal pain [Recovering/Resolving]
  - Dyspnoea [Recovering/Resolving]
  - Dyspepsia [Recovering/Resolving]
  - Pruritus generalised [Recovering/Resolving]
  - Ocular hyperaemia [Recovering/Resolving]
  - Product substitution issue [Unknown]
